FAERS Safety Report 10053325 (Version 1)
Quarter: 2014Q2

REPORT INFORMATION
  Report Type: Spontaneous
  Country: BR (occurrence: BR)
  Receive Date: 20140402
  Receipt Date: 20140402
  Transmission Date: 20141212
  Serious: Yes (Other)
  Sender: FDA-Public Use
  Company Number: BR-ASTRAZENECA-2014SE21108

PATIENT
  Age: 62 Year
  Sex: Female
  Weight: 87 kg

DRUGS (4)
  1. ATACAND [Suspect]
     Indication: HYPERTENSION
     Route: 048
     Dates: start: 2009, end: 201311
  2. ATACAND [Suspect]
     Indication: HYPERTENSION
     Route: 048
  3. LIPITOR [Concomitant]
     Indication: BLOOD CHOLESTEROL INCREASED
     Dosage: DAILY
     Route: 048
     Dates: start: 2009
  4. VEROTINA [Concomitant]
     Indication: SEDATIVE THERAPY
     Dosage: AT NIGHT
     Route: 048
     Dates: start: 2009

REACTIONS (4)
  - Blood pressure increased [Unknown]
  - Headache [Recovered/Resolved]
  - Retching [Recovered/Resolved]
  - Drug ineffective [Unknown]
